FAERS Safety Report 8001567-7 (Version None)
Quarter: 2011Q4

REPORT INFORMATION
  Report Type: 
  Country: None (occurrence: None)
  Receive Date: 20111222
  Receipt Date: 20111219
  Transmission Date: 20120403
  Serious: Yes (Other)
  Sender: FDA-Public Use
  Company Number: US-PFIZER INC-2011279393

PATIENT
  Sex: Male

DRUGS (2)
  1. LIPITOR [Suspect]
     Indication: BLOOD CHOLESTEROL
     Dosage: 250 MG, 1X/DAY
     Route: 048
     Dates: start: 20110901, end: 20110930
  2. OXYCODONE [Concomitant]
     Indication: PAIN
     Dosage: 5 MG, 1X/DAY
     Dates: start: 20070110

REACTIONS (3)
  - ARTHRALGIA [None]
  - MALAISE [None]
  - ABASIA [None]
